FAERS Safety Report 25524534 (Version 1)
Quarter: 2025Q3

REPORT INFORMATION
  Report Type: Report from Study
  Country: EU (occurrence: EU)
  Receive Date: 20250707
  Receipt Date: 20250707
  Transmission Date: 20251021
  Serious: Yes (Other)
  Sender: ROCHE
  Company Number: EU-ROCHE-10000326669

PATIENT

DRUGS (1)
  1. TOCILIZUMAB [Suspect]
     Active Substance: TOCILIZUMAB
     Indication: Giant cell arteritis
     Route: 065

REACTIONS (21)
  - Urinary tract infection [Unknown]
  - Bacteraemia [Unknown]
  - Varicella zoster virus infection [Unknown]
  - Cellulitis [Unknown]
  - Osteomyelitis [Unknown]
  - Pericarditis [Unknown]
  - Candida infection [Unknown]
  - Colon cancer [Unknown]
  - Lung neoplasm malignant [Unknown]
  - Myelodysplastic syndrome [Unknown]
  - Pyelonephritis [Unknown]
  - Bladder cancer [Unknown]
  - Pneumonia [Unknown]
  - Sepsis [Unknown]
  - Upper respiratory tract infection [Unknown]
  - Arthritis bacterial [Unknown]
  - Abscess [Unknown]
  - COVID-19 [Unknown]
  - Meningitis [Unknown]
  - Bursitis infective [Unknown]
  - Cytomegalovirus infection [Unknown]
